FAERS Safety Report 4984708-5 (Version None)
Quarter: 2006Q2

REPORT INFORMATION
  Report Type: 
  Country: None (occurrence: None)
  Receive Date: 20060427
  Receipt Date: 20060424
  Transmission Date: 20061013
  Serious: Yes (Hospitalization, Other)
  Sender: FDA-Public Use
  Company Number: CA-MERCK-0604CAN00088

PATIENT
  Age: 55 Year
  Sex: Male
  Weight: 63 kg

DRUGS (5)
  1. COZAAR [Suspect]
     Indication: HYPERTENSION
     Route: 048
     Dates: start: 20060123, end: 20060413
  2. COZAAR [Suspect]
     Route: 048
     Dates: start: 20060413
  3. ATORVASTATIN CALCIUM [Concomitant]
     Indication: HYPERLIPIDAEMIA
     Route: 065
     Dates: start: 20050601
  4. TRANDOLAPRIL [Concomitant]
     Indication: HYPERTENSION
     Route: 065
     Dates: start: 20050930, end: 20060123
  5. METHYLPREDNISOLONE [Concomitant]
     Indication: BURSITIS
     Route: 065
     Dates: start: 20060106, end: 20060106

REACTIONS (1)
  - ROTATOR CUFF SYNDROME [None]
